FAERS Safety Report 17048325 (Version 1)
Quarter: 2019Q4

REPORT INFORMATION
  Report Type: Spontaneous
  Country: US (occurrence: US)
  Receive Date: 20191118
  Receipt Date: 20191118
  Transmission Date: 20200122
  Serious: Yes (Disabling)
  Sender: FDA-Public Use
  Company Number: None

PATIENT
  Age: 17 Year
  Sex: Male
  Weight: 72 kg

DRUGS (2)
  1. METHYLPHENIDATE HCL EXTENDED-RELEASE TABLETS [Suspect]
     Active Substance: METHYLPHENIDATE HYDROCHLORIDE
     Indication: ATTENTION DEFICIT/HYPERACTIVITY DISORDER
     Dosage: ?          QUANTITY:1 CAPSULE(S);?
  2. ALLERGIES(SEASONAL) [Concomitant]

REACTIONS (4)
  - Disturbance in attention [None]
  - Product substitution issue [None]
  - Product supply issue [None]
  - Product quality issue [None]

NARRATIVE: CASE EVENT DATE: 20190911
